FAERS Safety Report 21923251 (Version 2)
Quarter: 2023Q2

REPORT INFORMATION
  Report Type: Spontaneous
  Country: CA (occurrence: CA)
  Receive Date: 20230129
  Receipt Date: 20230424
  Transmission Date: 20230722
  Serious: Yes (Death, Hospitalization, Other)
  Sender: FDA-Public Use
  Company Number: CA-JNJFOC-20230151432

PATIENT
  Age: 77 Year
  Sex: Female
  Weight: 72 kg

DRUGS (6)
  1. REMICADE [Suspect]
     Active Substance: INFLIXIMAB
     Indication: Colitis ulcerative
     Dosage: PATIENT RECEIVED NON COMPANY INFLIXIMAB
     Route: 041
  2. INFLIXIMAB [Suspect]
     Active Substance: INFLIXIMAB
     Indication: Colitis ulcerative
     Route: 041
     Dates: start: 20220425
  3. INFLIXIMAB [Suspect]
     Active Substance: INFLIXIMAB
     Route: 041
     Dates: start: 20220511
  4. INFLIXIMAB [Suspect]
     Active Substance: INFLIXIMAB
     Route: 041
     Dates: start: 20220607
  5. INFLIXIMAB [Suspect]
     Active Substance: INFLIXIMAB
     Route: 041
     Dates: start: 20220607
  6. PREDNISONE [Concomitant]
     Active Substance: PREDNISONE

REACTIONS (5)
  - Death [Fatal]
  - Malaise [Not Recovered/Not Resolved]
  - Sepsis [Not Recovered/Not Resolved]
  - Bowel movement irregularity [Not Recovered/Not Resolved]
  - Condition aggravated [Not Recovered/Not Resolved]
